FAERS Safety Report 10539619 (Version 2)
Quarter: 2014Q4

REPORT INFORMATION
  Report Type: Spontaneous
  Country: None (occurrence: US)
  Receive Date: 20141023
  Receipt Date: 20141023
  Transmission Date: 20150529
  Serious: No
  Sender: FDA-Public Use
  Company Number: US-ALLERGAN-1317707US

PATIENT
  Age: 83 Year
  Sex: Male

DRUGS (2)
  1. LATANAPROST [Concomitant]
     Indication: GLAUCOMA
     Dosage: 1 GTT, QHS
     Route: 047
  2. COMBIGAN[R] [Suspect]
     Active Substance: BRIMONIDINE TARTRATE\TIMOLOL MALEATE
     Indication: GLAUCOMA
     Dosage: 2 GTT, UNK
     Route: 047

REACTIONS (4)
  - Inappropriate schedule of drug administration [Unknown]
  - Medication residue present [Unknown]
  - Eye discharge [Unknown]
  - Eye irritation [Unknown]
